FAERS Safety Report 8718472 (Version 5)
Quarter: 2012Q4

REPORT INFORMATION
  Report Type: 
  Country: BE (occurrence: BE)
  Receive Date: 20120810
  Receipt Date: 20121126
  Transmission Date: 20130627
  Serious: Yes (Hospitalization, Other)
  Sender: FDA-Public Use
  Company Number: BE-ROCHE-1099889

PATIENT
  Sex: Male

DRUGS (6)
  1. LUCENTIS [Suspect]
     Indication: AGE-RELATED MACULAR DEGENERATION
     Route: 050
     Dates: start: 20110421
  2. LUCENTIS [Suspect]
     Route: 050
     Dates: start: 20110523
  3. LUCENTIS [Suspect]
     Route: 050
     Dates: start: 20110624
  4. LUCENTIS [Suspect]
     Route: 050
     Dates: start: 20110923
  5. LUCENTIS [Suspect]
     Route: 050
     Dates: start: 20110227
  6. ASPIRIN [Concomitant]

REACTIONS (2)
  - Thromboangiitis obliterans [Recovered/Resolved]
  - Disease recurrence [Unknown]
